FAERS Safety Report 16068864 (Version 2)
Quarter: 2019Q2

REPORT INFORMATION
  Report Type: Spontaneous
  Country: US (occurrence: US)
  Receive Date: 20190313
  Receipt Date: 20190415
  Transmission Date: 20190711
  Serious: No
  Sender: FDA-Public Use
  Company Number: US-TEVA-2019-US-1022369

PATIENT

DRUGS (1)
  1. DESIPRAMINE [Suspect]
     Active Substance: DESIPRAMINE
     Route: 065

REACTIONS (2)
  - Dizziness [Unknown]
  - Drug hypersensitivity [Unknown]
